FAERS Safety Report 8543155-X (Version None)
Quarter: 2012Q3

REPORT INFORMATION
  Report Type: 
  Country: None (occurrence: None)
  Receive Date: 20120727
  Receipt Date: 20120713
  Transmission Date: 20120928
  Serious: Yes (Death, Hospitalization)
  Sender: FDA-Public Use
  Company Number: DE-RANBAXY-2011RR-41521

PATIENT
  Age: 76 Year
  Sex: Male
  Weight: 120 kg

DRUGS (24)
  1. SYMBICORT [Concomitant]
     Indication: CHRONIC OBSTRUCTIVE PULMONARY DISEASE
     Dosage: 1 DF, BID
     Route: 055
  2. TORASEMID 10 MG [Concomitant]
     Indication: HYPERTENSION
     Dosage: 5 MG, QD
     Route: 048
  3. SIMVASTATIN [Concomitant]
     Indication: HYPERLIPIDAEMIA
     Dosage: 20 MG, QD
     Route: 048
  4. ZOFRAN [Concomitant]
     Indication: NAUSEA
     Dosage: UNK
     Route: 048
     Dates: start: 20091127, end: 20091127
  5. OXYGESIC AKUT [Concomitant]
     Indication: PAIN
     Dosage: UNK
     Route: 048
     Dates: start: 20091201, end: 20091201
  6. CEFUROXIME [Suspect]
     Dosage: 1.5 G, UNK
     Route: 042
     Dates: start: 20091125, end: 20091125
  7. BERLOSIN [Concomitant]
     Indication: PAIN
     Dosage: 500 MG, TID
     Route: 048
     Dates: start: 20091126, end: 20091207
  8. OXYCODONE HCL [Concomitant]
     Indication: PAIN
     Dosage: 10 MG, BID
     Route: 048
     Dates: start: 20091126
  9. FALITHROM [Concomitant]
     Indication: THROMBOSIS PROPHYLAXIS
     Dosage: UNK
     Route: 048
     Dates: start: 20050101, end: 20091117
  10. MONO-EMBOLEX 3000 I.E. [Concomitant]
     Indication: THROMBOSIS PROPHYLAXIS
     Dosage: 3000 IU, QD
     Route: 058
     Dates: start: 20091124, end: 20091125
  11. OMEPRAZOLE [Interacting]
     Indication: PROPHYLAXIS AGAINST GASTROINTESTINAL ULCER
     Dosage: 40 MG, QD
     Route: 048
     Dates: start: 20091126
  12. OXIS TURBOHALER 6 UG [Concomitant]
     Indication: CHRONIC OBSTRUCTIVE PULMONARY DISEASE
     Dosage: 6 UG, QD
     Route: 055
  13. BISOPROLOL 5MG [Concomitant]
     Indication: HYPERTENSION
     Dosage: 2.5 MG, BID
     Route: 048
     Dates: end: 20091204
  14. ACETAMINOPHEN [Concomitant]
     Indication: PAIN
     Dosage: UNK
     Route: 042
     Dates: start: 20091125, end: 20091202
  15. SPIRIVA 18 UG [Concomitant]
     Indication: CHRONIC OBSTRUCTIVE PULMONARY DISEASE
     Dosage: 18 UG, QD
     Route: 055
  16. TAMSULOSIN HCL [Concomitant]
     Indication: BENIGN PROSTATIC HYPERPLASIA
     Dosage: 0.4 MG, QD
     Route: 048
  17. ALLOPURINOL [Concomitant]
     Indication: HYPERURICAEMIA
     Dosage: 150 MG, QD
     Route: 048
  18. VOLTAREN [Concomitant]
     Indication: PAIN
     Dosage: 50 MG, BID
     Route: 048
     Dates: start: 20091126, end: 20091130
  19. MONO-EMBOLEX 8000 I.E. [Concomitant]
     Indication: THROMBOSIS PROPHYLAXIS
     Dosage: 8000 IU, QD
     Route: 058
     Dates: start: 20091126, end: 20091217
  20. CEFUROXIME [Suspect]
     Indication: INFECTION PROPHYLAXIS
     Dosage: 500 MG, TID
     Route: 048
     Dates: start: 20091126, end: 20091202
  21. BLOPRESS 16 MG/12.5 MG [Concomitant]
     Indication: HYPERTENSION
     Dosage: 1 DF, UNK
     Route: 048
     Dates: end: 20091204
  22. VEROSPIRON 25 MG [Concomitant]
     Indication: OEDEMA
     Dosage: 12.5 MG, QD
     Route: 048
  23. CLEXANE 80 MG [Concomitant]
     Indication: THROMBOSIS PROPHYLAXIS
     Dosage: 80 MG, QD
     Route: 058
     Dates: start: 20091118, end: 20091122
  24. KONAKION [Concomitant]
     Indication: VITAMIN K DEFICIENCY
     Dosage: UNK
     Route: 042
     Dates: start: 20091123, end: 20091124

REACTIONS (3)
  - CLOSTRIDIUM DIFFICILE COLITIS [None]
  - DRUG INTERACTION [None]
  - PAIN [None]
